FAERS Safety Report 10498606 (Version 1)
Quarter: 2014Q4

REPORT INFORMATION
  Report Type: Other
  Country: DE (occurrence: DE)
  Receive Date: 20141006
  Receipt Date: 20141006
  Transmission Date: 20150528
  Serious: Yes (Hospitalization)
  Sender: FDA-Public Use
  Company Number: DE-MYLANLABS-2014M1005990

PATIENT

DRUGS (2)
  1. AMLODIPINE [Suspect]
     Active Substance: AMLODIPINE BESYLATE
     Indication: HYPERTENSION
     Dosage: DAILY DOSE: 5 MG MILLIGRAM(S) EVERY DAY
     Route: 048
     Dates: start: 2008, end: 2014
  2. LISILICH COMP. 20 MG/12,5 MG TABLETTEN [Suspect]
     Active Substance: HYDROCHLOROTHIAZIDE\LISINOPRIL
     Indication: HYPERTENSION
     Dosage: DAILY DOSE: 1 DF DOSAGE FORM EVERY DAY
     Route: 048
     Dates: start: 2008, end: 2014

REACTIONS (3)
  - Gait disturbance [Recovered/Resolved]
  - Myalgia [Recovered/Resolved]
  - Pain [Recovered/Resolved]
